FAERS Safety Report 4823436-3 (Version None)
Quarter: 2005Q4

REPORT INFORMATION
  Report Type: 
  Country: None (occurrence: None)
  Receive Date: 20051107
  Receipt Date: 20051017
  Transmission Date: 20060501
  Serious: Yes (Other)
  Sender: FDA-Public Use
  Company Number: 032-39

PATIENT
  Age: 69 Year
  Sex: Female

DRUGS (5)
  1. TEVETEN [Suspect]
     Indication: HYPERTENSION
     Dosage: 600 MG QD PO
     Route: 048
     Dates: start: 20050801
  2. NORVASC [Concomitant]
  3. ACEBUTOLOL HCL [Concomitant]
  4. SYNTHROID [Concomitant]
  5. ZOCOR [Concomitant]

REACTIONS (4)
  - CONDITION AGGRAVATED [None]
  - CORNEAL DYSTROPHY [None]
  - PAIN IN EXTREMITY [None]
  - VISION BLURRED [None]
